FAERS Safety Report 18166377 (Version 2)
Quarter: 2022Q2

REPORT INFORMATION
  Report Type: Spontaneous
  Country: CA (occurrence: CA)
  Receive Date: 20200819
  Receipt Date: 20220426
  Transmission Date: 20220720
  Serious: Yes (Hospitalization, Other)
  Sender: FDA-Public Use
  Company Number: None

PATIENT
  Age: 60 Year
  Sex: Female

DRUGS (15)
  1. METHOTREXATE [Suspect]
     Active Substance: METHOTREXATE
     Indication: Product used for unknown indication
  2. CEPHALEXIN [Suspect]
     Active Substance: CEPHALEXIN
     Indication: Product used for unknown indication
  3. CODEINE [Suspect]
     Active Substance: CODEINE
     Indication: Product used for unknown indication
  4. OMNARIS [Suspect]
     Active Substance: CICLESONIDE
     Indication: Sinusitis
     Dosage: ROUTE OF ADMINISTRATION: INTRA-NASAL, DOSAGE FORM: SPRAY, METERED DOSE
  5. REMICADE [Suspect]
     Active Substance: INFLIXIMAB
     Indication: Product used for unknown indication
     Dosage: DOSAGE FORM: POWDER FOR SOLUTION INTRAVENOUS
     Route: 042
  6. BUDESONIDE [Concomitant]
     Active Substance: BUDESONIDE
  7. CYANOCOBALAMIN [Concomitant]
     Active Substance: CYANOCOBALAMIN
  8. ESTRADIOL [Concomitant]
     Active Substance: ESTRADIOL
  9. FOLIC ACID [Concomitant]
     Active Substance: FOLIC ACID
  10. MESALAMINE [Concomitant]
     Active Substance: MESALAMINE
  11. PREDNISONE [Concomitant]
     Active Substance: PREDNISONE
  12. PROMETRIUM [Concomitant]
     Active Substance: PROGESTERONE
  13. TELMISARTAN [Concomitant]
     Active Substance: TELMISARTAN
  14. TRIMEBUTINE [Concomitant]
     Active Substance: TRIMEBUTINE
  15. WARFARIN [Concomitant]
     Active Substance: WARFARIN

REACTIONS (15)
  - Abscess intestinal [Not Recovered/Not Resolved]
  - Chills [Not Recovered/Not Resolved]
  - Chronic sinusitis [Not Recovered/Not Resolved]
  - Crohn^s disease [Not Recovered/Not Resolved]
  - Dyspnoea [Not Recovered/Not Resolved]
  - Heart rate increased [Not Recovered/Not Resolved]
  - Hypertensive crisis [Not Recovered/Not Resolved]
  - Lethargy [Not Recovered/Not Resolved]
  - Migraine [Not Recovered/Not Resolved]
  - Multiple sclerosis [Not Recovered/Not Resolved]
  - Neurological symptom [Not Recovered/Not Resolved]
  - Pruritus [Not Recovered/Not Resolved]
  - Rash [Not Recovered/Not Resolved]
  - Subclavian vein thrombosis [Not Recovered/Not Resolved]
  - Vomiting [Not Recovered/Not Resolved]
